FAERS Safety Report 16112164 (Version 4)
Quarter: 2019Q2

REPORT INFORMATION
  Report Type: Report from Study
  Country: US (occurrence: US)
  Receive Date: 20190325
  Receipt Date: 20190506
  Transmission Date: 20190711
  Serious: Yes (Other)
  Sender: FDA-Public Use
  Company Number: US-B.I. PHARMACEUTICALS,INC./RIDGEFIELD-2019-BI-003593

PATIENT
  Age: 71 Year
  Sex: Male

DRUGS (2)
  1. OFEV [Suspect]
     Active Substance: NINTEDANIB
     Indication: IDIOPATHIC PULMONARY FIBROSIS
     Route: 048
     Dates: start: 20181108
  2. OFEV [Suspect]
     Active Substance: NINTEDANIB
     Route: 048

REACTIONS (7)
  - Decreased appetite [Not Recovered/Not Resolved]
  - Fatigue [Not Recovered/Not Resolved]
  - Anxiety [Not Recovered/Not Resolved]
  - Diarrhoea [Not Recovered/Not Resolved]
  - Headache [Not Recovered/Not Resolved]
  - Diarrhoea [Recovered/Resolved]
  - Gastroenteritis viral [Not Recovered/Not Resolved]

NARRATIVE: CASE EVENT DATE: 20181119
